FAERS Safety Report 7332901-9 (Version None)
Quarter: 2011Q1

REPORT INFORMATION
  Report Type: 
  Country: None (occurrence: None)
  Receive Date: 20110304
  Receipt Date: 20110302
  Transmission Date: 20110831
  Serious: Yes (Death)
  Sender: FDA-Public Use
  Company Number: BR-ACTELION-A-CH2011-45765

PATIENT
  Sex: Female

DRUGS (1)
  1. TRACLEER [Suspect]
     Dosage: 125 MG, UNK
     Route: 048

REACTIONS (1)
  - CARDIAC ARREST [None]
